FAERS Safety Report 4408897-6 (Version None)
Quarter: 2004Q3

REPORT INFORMATION
  Report Type: 
  Country: None (occurrence: None)
  Receive Date: 20040727
  Receipt Date: 20040714
  Transmission Date: 20050211
  Serious: Yes (Death, Other)
  Sender: FDA-Public Use
  Company Number: PHBS2004JP09436

PATIENT
  Age: 23 Year
  Sex: Female

DRUGS (3)
  1. CYCLOSPORINE [Suspect]
     Indication: BONE MARROW TRANSPLANT
     Route: 048
  2. TACROLIMUS [Suspect]
     Indication: BONE MARROW TRANSPLANT
     Route: 065
  3. VALPROATE SODIUM [Suspect]

REACTIONS (11)
  - B-CELL LYMPHOMA [None]
  - BLOOD PRESSURE SYSTOLIC INCREASED [None]
  - CENTRAL NERVOUS SYSTEM LYMPHOMA [None]
  - CONVULSION [None]
  - DRUG ERUPTION [None]
  - DRUG INEFFECTIVE [None]
  - ENCEPHALOPATHY [None]
  - EPSTEIN-BARR VIRUS INFECTION [None]
  - GRAFT VERSUS HOST DISEASE [None]
  - HEADACHE [None]
  - HYPERTENSION [None]
